FAERS Safety Report 5627662-5 (Version None)
Quarter: 2008Q1

REPORT INFORMATION
  Report Type: 
  Country: None (occurrence: None)
  Receive Date: 20080214
  Receipt Date: 20080214
  Transmission Date: 20080703
  Serious: Yes (Hospitalization)
  Sender: FDA-Public Use
  Company Number: None

PATIENT
  Age: 57 Year
  Sex: Male

DRUGS (3)
  1. SORAFENIB 200MG [Suspect]
     Indication: HEPATIC NEOPLASM MALIGNANT
     Dosage: 200 MG TWICE DAILY PO
     Route: 048
     Dates: start: 20080101
  2. INDERAL [Concomitant]
  3. LASIX [Concomitant]

REACTIONS (4)
  - CONDITION AGGRAVATED [None]
  - DIARRHOEA [None]
  - PYREXIA [None]
  - THROMBOCYTOPENIA [None]
